FAERS Safety Report 6914529-5 (Version None)
Quarter: 2010Q3

REPORT INFORMATION
  Report Type: 
  Country: None (occurrence: None)
  Receive Date: 20100804
  Receipt Date: 20100727
  Transmission Date: 20110219
  Serious: Yes (Death)
  Sender: FDA-Public Use
  Company Number: 2010PL000075

PATIENT
  Age: 45 Year
  Sex: Female
  Weight: 62.5964 kg

DRUGS (3)
  1. LOTRONEX [Suspect]
     Indication: DIARRHOEA
     Dosage: 0.5 MG;BID
     Dates: start: 20090901
  2. LOTRONEX [Suspect]
     Indication: IRRITABLE BOWEL SYNDROME
     Dosage: 0.5 MG;BID
     Dates: start: 20090901
  3. LOMOTIL  /00034001/ [Concomitant]

REACTIONS (1)
  - DEATH [None]
